FAERS Safety Report 26008512 (Version 1)
Quarter: 2025Q4

REPORT INFORMATION
  Report Type: Spontaneous
  Country: US (occurrence: US)
  Receive Date: 20251106
  Receipt Date: 20251106
  Transmission Date: 20260117
  Serious: No
  Sender: SANOFI AVENTIS
  Company Number: US-SANOFI-02710803

PATIENT
  Age: 33 Year
  Sex: Female

DRUGS (3)
  1. BEYFORTUS [Suspect]
     Active Substance: NIRSEVIMAB-ALIP
     Indication: Respiratory syncytial virus infection
     Dosage: 0.5 ML, 1X
     Route: 030
     Dates: start: 20251103, end: 20251103
  2. TETANUS TOXOID ADSORBED (VACCINE) [Concomitant]
     Active Substance: TETANUS TOXOIDS
     Indication: Immunisation
     Dosage: UNK
     Route: 065
  3. INFLUENZA VIRUS VACCINE [Concomitant]
     Active Substance: INFLUENZA VIRUS VACCINE
     Indication: Immunisation
     Dosage: UNK
     Route: 065

REACTIONS (2)
  - Maternal exposure during pregnancy [Unknown]
  - Product use issue [Unknown]

NARRATIVE: CASE EVENT DATE: 20251103
